FAERS Safety Report 15033865 (Version 1)
Quarter: 2018Q2

REPORT INFORMATION
  Report Type: Report from Study
  Country: US (occurrence: US)
  Receive Date: 20180620
  Receipt Date: 20180620
  Transmission Date: 20180711
  Serious: Yes (Other)
  Sender: FDA-Public Use
  Company Number: US-AMGEN-USASL2018080115

PATIENT
  Sex: Female

DRUGS (1)
  1. REPATHA [Suspect]
     Active Substance: EVOLOCUMAB
     Indication: PRODUCT USED FOR UNKNOWN INDICATION
     Dosage: UNK
     Route: 065

REACTIONS (7)
  - Feeling abnormal [Unknown]
  - Facial neuralgia [Unknown]
  - Blister [Unknown]
  - Exfoliative rash [Unknown]
  - Tinnitus [Unknown]
  - Muscle twitching [Unknown]
  - Hypoacusis [Unknown]
